FAERS Safety Report 23581727 (Version 4)
Quarter: 2024Q1

REPORT INFORMATION
  Report Type: Spontaneous
  Country: PL (occurrence: PL)
  Receive Date: 20240229
  Receipt Date: 20240318
  Transmission Date: 20240410
  Serious: Yes (Hospitalization, Other)
  Sender: FDA-Public Use
  Company Number: None

PATIENT
  Age: 41 Year
  Sex: Male

DRUGS (19)
  1. SERTRALINE [Interacting]
     Active Substance: SERTRALINE HYDROCHLORIDE
     Indication: Mood altered
     Dosage: 50 MILLIGRAM, QD IN THE MORNING
     Route: 065
  2. SERTRALINE [Interacting]
     Active Substance: SERTRALINE HYDROCHLORIDE
     Indication: Affective disorder
  3. SERTRALINE [Interacting]
     Active Substance: SERTRALINE HYDROCHLORIDE
     Indication: Tearfulness
  4. SERTRALINE [Interacting]
     Active Substance: SERTRALINE HYDROCHLORIDE
     Indication: Sleep disorder
  5. SERTRALINE [Interacting]
     Active Substance: SERTRALINE HYDROCHLORIDE
     Indication: Irritability
  6. MIANSERIN [Interacting]
     Active Substance: MIANSERIN
     Indication: Mood altered
     Dosage: 30 MILLIGRAM, QD  IN THE NIGHT/AT BEDTIME
     Route: 065
  7. MIANSERIN [Interacting]
     Active Substance: MIANSERIN
     Indication: Affective disorder
  8. MIANSERIN [Interacting]
     Active Substance: MIANSERIN
     Indication: Tearfulness
  9. MIANSERIN [Interacting]
     Active Substance: MIANSERIN
     Indication: Sleep disorder
  10. MIANSERIN [Interacting]
     Active Substance: MIANSERIN
     Indication: Irritability
  11. PREGABALIN [Suspect]
     Active Substance: PREGABALIN
     Indication: Visceral pain
     Dosage: 300 MILLIGRAM, BID
     Route: 065
  12. FENTANYL [Interacting]
     Active Substance: FENTANYL\FENTANYL CITRATE
     Indication: Visceral pain
     Dosage: 200 MICROGRAM, QH
     Route: 045
  13. FENTANYL [Interacting]
     Active Substance: FENTANYL\FENTANYL CITRATE
     Indication: Breakthrough pain
  14. BUTYLSCOPOLAMINE BROMIDE [Interacting]
     Active Substance: BUTYLSCOPOLAMINE BROMIDE
     Indication: Pain
     Dosage: 10 MILLIGRAM, Q3D
     Route: 047
  15. BUTYLSCOPOLAMINE BROMIDE [Interacting]
     Active Substance: BUTYLSCOPOLAMINE BROMIDE
     Indication: Abdominal pain
  16. ACETAMINOPHEN [Interacting]
     Active Substance: ACETAMINOPHEN
     Indication: Product used for unknown indication
     Dosage: 1000 MILLIGRAM, Q3D
     Route: 065
  17. FENTANYL [Suspect]
     Active Substance: FENTANYL\FENTANYL CITRATE
     Indication: Visceral pain
     Dosage: 50 MICROGRAM, QH
     Route: 062
  18. FENTANYL [Suspect]
     Active Substance: FENTANYL\FENTANYL CITRATE
     Indication: Pain prophylaxis
     Dosage: 100 MICROGRAM, QH
     Route: 062
  19. ACETAMINOPHEN [Concomitant]
     Active Substance: ACETAMINOPHEN
     Indication: Visceral pain
     Dosage: 1 GRAM, Q8H
     Route: 065

REACTIONS (10)
  - Neurotoxicity [Recovering/Resolving]
  - Sensitisation [Recovered/Resolved]
  - Hyperaesthesia [Recovered/Resolved]
  - Abdominal pain [Recovering/Resolving]
  - Medication error [Unknown]
  - Drug interaction [Recovering/Resolving]
  - Hospitalisation [Unknown]
  - Somnolence [Recovering/Resolving]
  - Drug ineffective [Unknown]
  - Sleep disorder [Unknown]
